FAERS Safety Report 5272625-5 (Version None)
Quarter: 2007Q1

REPORT INFORMATION
  Report Type: 
  Country: None (occurrence: None)
  Receive Date: 20070320
  Receipt Date: 20070320
  Transmission Date: 20070707
  Serious: Yes (Other)
  Sender: FDA-Public Use
  Company Number: None

PATIENT
  Sex: Female

DRUGS (5)
  1. REVLIMID [Suspect]
     Indication: MULTIPLE MYELOMA
     Dosage: 10MG DAILY PO
     Route: 048
  2. FENTANYL [Concomitant]
  3. PROCRIT [Concomitant]
  4. CYANOCOBALAMIN [Concomitant]
  5. DECADRON [Concomitant]

REACTIONS (1)
  - NEUTROPENIA [None]
